FAERS Safety Report 6686975-9 (Version None)
Quarter: 2010Q2

REPORT INFORMATION
  Report Type: 
  Country: None (occurrence: None)
  Receive Date: 20100419
  Receipt Date: 20100408
  Transmission Date: 20101027
  Serious: Yes (Other)
  Sender: FDA-Public Use
  Company Number: IE-PFIZER INC-2010044435

PATIENT
  Sex: Male

DRUGS (2)
  1. ZARONTIN [Suspect]
  2. EPILIM [Concomitant]

REACTIONS (2)
  - DECREASED APPETITE [None]
  - HYPOGLYCAEMIA [None]
